FAERS Safety Report 5709692-8 (Version None)
Quarter: 2008Q2

REPORT INFORMATION
  Report Type: 
  Country: None (occurrence: None)
  Receive Date: 20080418
  Receipt Date: 20080409
  Transmission Date: 20081010
  Serious: Yes (Other)
  Sender: FDA-Public Use
  Company Number: PHEH2008US03688

PATIENT
  Sex: Male

DRUGS (2)
  1. EXELON [Suspect]
     Route: 062
     Dates: start: 20080101
  2. EXELON [Suspect]
     Dosage: 9.5 MG, UNK
     Route: 062
     Dates: start: 20080301

REACTIONS (1)
  - DISORIENTATION [None]
